FAERS Safety Report 7764658-1 (Version None)
Quarter: 2011Q3

REPORT INFORMATION
  Report Type: 
  Country: None (occurrence: None)
  Receive Date: 20110921
  Receipt Date: 20110916
  Transmission Date: 20111222
  Serious: Yes (Death, Other)
  Sender: FDA-Public Use
  Company Number: PHHY2011DE82159

PATIENT
  Age: 29 Year
  Sex: Female

DRUGS (12)
  1. ANTI-THYMOCYTE GLOBULIN NOS [Concomitant]
  2. ALEMTUZUMAB [Concomitant]
  3. CYCLOSPORINE [Suspect]
     Indication: STEM CELL TRANSPLANT
  4. MYCOPHENOLATE MOFETIL [Concomitant]
  5. DEFEROXAMINE MESYLATE [Concomitant]
  6. MENINGOCOCCAL VACCINES [Concomitant]
  7. MELPHALAN HYDROCHLORIDE [Concomitant]
  8. DEFERIPRONE [Concomitant]
  9. ECULIZUMAB [Concomitant]
  10. FLUDARABINE PHOSPHATE [Concomitant]
  11. THIOTEPA [Concomitant]
  12. ANTIBIOTICS [Concomitant]

REACTIONS (6)
  - FUSARIUM INFECTION [None]
  - MACULE [None]
  - MYELODYSPLASTIC SYNDROME [None]
  - BLOOD STEM CELL TRANSPLANT FAILURE [None]
  - PAROXYSMAL NOCTURNAL HAEMOGLOBINURIA [None]
  - HAEMOLYSIS [None]
